FAERS Safety Report 11136156 (Version 1)
Quarter: 2015Q2

REPORT INFORMATION
  Report Type: Spontaneous
  Country: PT (occurrence: PT)
  Receive Date: 20150526
  Receipt Date: 20150526
  Transmission Date: 20150821
  Serious: Yes (Death, Hospitalization)
  Sender: FDA-Public Use
  Company Number: PT-PFIZER INC-2015172849

PATIENT
  Age: 63 Year
  Sex: Male
  Weight: 75 kg

DRUGS (5)
  1. SUTENT [Suspect]
     Active Substance: SUNITINIB MALATE
     Indication: RENAL CELL CARCINOMA STAGE IV
     Dosage: 1 DF, 1X/DAY
     Dates: start: 20140404, end: 20140522
  2. CORDARONE [Concomitant]
     Active Substance: AMIODARONE HYDROCHLORIDE
     Dosage: 200 MG, 1X/DAY
  3. TRAMADOL [Concomitant]
     Active Substance: TRAMADOL
     Dosage: 1 DF, 1X/DAY
     Route: 065
  4. INDERAL LA [Concomitant]
     Active Substance: PROPRANOLOL HYDROCHLORIDE
     Dosage: 80 MG, 1X/DAY
  5. VARFINE [Concomitant]
     Active Substance: WARFARIN SODIUM
     Dosage: 5 MG, 1X/DAY

REACTIONS (9)
  - Cerebral haemorrhage [Unknown]
  - Pruritus generalised [Unknown]
  - Death [Fatal]
  - Dyspnoea [Unknown]
  - Pyrexia [Unknown]
  - Haematochezia [Unknown]
  - Chest pain [Unknown]
  - Generalised tonic-clonic seizure [Unknown]
  - Rash generalised [Unknown]

NARRATIVE: CASE EVENT DATE: 2014
